FAERS Safety Report 15288549 (Version 1)
Quarter: 2018Q3

REPORT INFORMATION
  Report Type: Spontaneous
  Country: US (occurrence: US)
  Receive Date: 20180802
  Receipt Date: 20180802
  Transmission Date: 20181010
  Serious: Yes (Hospitalization, Disabling)
  Sender: FDA-Public Use
  Company Number: None

PATIENT
  Age: 63 Year
  Sex: Female
  Weight: 56.25 kg

DRUGS (10)
  1. FISH OIL [Concomitant]
     Active Substance: FISH OIL
  2. COQ10 [Concomitant]
     Active Substance: UBIDECARENONE
  3. VITAMIN D [Concomitant]
     Active Substance: CHOLECALCIFEROL
  4. AIMOVIG [Suspect]
     Active Substance: ERENUMAB-AOOE
     Indication: MIGRAINE
     Dosage: ?          QUANTITY:2 INJECTION(S);OTHER FREQUENCY:ONCE A MONTH;?
     Route: 058
     Dates: start: 20180729, end: 20180729
  5. ASPIRIN. [Concomitant]
     Active Substance: ASPIRIN
  6. MG [Concomitant]
     Active Substance: MAGNESIUM
  7. PROPRANOLOL [Concomitant]
     Active Substance: PROPRANOLOL HYDROCHLORIDE
  8. SUPER B COMPLEX [Concomitant]
     Active Substance: CYANOCOBALAMIN\DEXPANTHENOL\NIACINAMIDE\PYRIDOXINE HYDROCHLORIDE\RIBOFLAVIN 5^-PHOSPHATE SODIUM\THIAMINE HYDROCHLORIDE\VITAMIN B COMPLEX
  9. VARAPAMIL [Concomitant]
  10. VYTORIN [Concomitant]
     Active Substance: EZETIMIBE\SIMVASTATIN

REACTIONS (4)
  - Dyspnoea [None]
  - Urticaria [None]
  - Eyelid oedema [None]
  - Hypersensitivity [None]

NARRATIVE: CASE EVENT DATE: 20180729
